FAERS Safety Report 14023771 (Version 1)
Quarter: 2017Q3

REPORT INFORMATION
  Report Type: Spontaneous
  Country: US (occurrence: US)
  Receive Date: 20170929
  Receipt Date: 20170929
  Transmission Date: 20171128
  Serious: No
  Sender: FDA-Public Use
  Company Number: US-UPSHER-SMITH LABORATORIES, INC.-2017USL00120

PATIENT
  Sex: Female

DRUGS (9)
  1. KLOR-CON M [Suspect]
     Active Substance: POTASSIUM CHLORIDE
     Dosage: UNK UNK, 1X/DAY
     Route: 048
  2. METOPROLOL. [Concomitant]
     Active Substance: METOPROLOL
     Dosage: 20 MG, 1X/DAY
     Route: 048
  3. LASIX [Concomitant]
     Active Substance: FUROSEMIDE
     Dosage: 20 MG, 1X/DAY
     Route: 048
  4. LOSARTAN. [Concomitant]
     Active Substance: LOSARTAN
     Dosage: 100 MG, 1X/DAY
     Route: 048
  5. UNSPECIFIED VITAMINS [Concomitant]
     Active Substance: VITAMINS
     Dosage: UNK, 1X/DAY
     Route: 048
  6. CALCIUM [Concomitant]
     Active Substance: CALCIUM
     Dosage: UNK, 1X/DAY
     Route: 048
  7. VITAMIN B [Concomitant]
     Active Substance: VITAMIN B
     Dosage: UNK, 1X/DAY
     Route: 048
  8. KLOR-CON M [Suspect]
     Active Substance: POTASSIUM CHLORIDE
     Dosage: UNK, EVERY 48 HOURS
     Route: 048
  9. PLAVIX [Concomitant]
     Active Substance: CLOPIDOGREL BISULFATE
     Dosage: 75 MG, 1X/DAY
     Route: 048

REACTIONS (2)
  - Choking [Not Recovered/Not Resolved]
  - Product use complaint [Not Recovered/Not Resolved]
